FAERS Safety Report 7581426-4 (Version None)
Quarter: 2011Q2

REPORT INFORMATION
  Report Type: 
  Country: None (occurrence: None)
  Receive Date: 20110629
  Receipt Date: 20110615
  Transmission Date: 20111010
  Serious: Yes (Other)
  Sender: FDA-Public Use
  Company Number: PHHY2011BR53474

PATIENT
  Sex: Male

DRUGS (4)
  1. HYDERGINE [Suspect]
  2. HYDERGINE [Suspect]
     Dosage: 1 DF, UNK
     Route: 048
  3. DIOVAN [Suspect]
     Indication: HYPERTENSION
     Dosage: 1 DF, QD
     Route: 048
  4. ARCOXIA [Concomitant]
     Dosage: 2 DF, UNK
     Route: 048

REACTIONS (6)
  - MEMORY IMPAIRMENT [None]
  - ARTHRALGIA [None]
  - SOMNOLENCE [None]
  - GAIT DISTURBANCE [None]
  - CEREBROVASCULAR ACCIDENT [None]
  - SPEECH DISORDER [None]
